FAERS Safety Report 4312314-4 (Version None)
Quarter: 2004Q1

REPORT INFORMATION
  Report Type: 
  Country: None (occurrence: None)
  Receive Date: 20040305
  Receipt Date: 20040224
  Transmission Date: 20041129
  Serious: Yes (Other)
  Sender: FDA-Public Use
  Company Number: GB-GLAXOSMITHKLINE-B0324561A

PATIENT
  Sex: Male

DRUGS (7)
  1. OMEPRAZOLE [Suspect]
     Indication: DYSPEPSIA
     Dosage: 20MG PER DAY
     Route: 048
     Dates: start: 20040126, end: 20040128
  2. DIGOXIN [Suspect]
     Indication: CARDIAC DISORDER
     Dosage: .25MG UNKNOWN
     Route: 048
     Dates: start: 19960101
  3. ALLOPURINOL [Concomitant]
     Indication: GOUT
     Dosage: 300MG PER DAY
     Route: 048
  4. FLUCLOXACILLIN [Concomitant]
     Indication: INFECTION PROPHYLAXIS
     Dosage: 1000MG PER DAY
     Route: 048
  5. IRON SULPHATE [Concomitant]
     Indication: ANAEMIA
     Dosage: 400MG PER DAY
     Route: 048
     Dates: start: 20030401
  6. TAMSULOSIN [Concomitant]
     Indication: BENIGN PROSTATIC HYPERPLASIA
     Route: 048
     Dates: start: 20020821
  7. WARFARIN SODIUM [Concomitant]
     Indication: HYPERCOAGULATION
     Route: 048

REACTIONS (6)
  - ASTHENIA [None]
  - DIZZINESS [None]
  - DRUG INTERACTION [None]
  - DYSPEPSIA [None]
  - NAUSEA [None]
  - PHARMACEUTICAL PRODUCT COMPLAINT [None]
